FAERS Safety Report 9342665 (Version 2)
Quarter: 2013Q3

REPORT INFORMATION
  Report Type: Spontaneous
  Country: FR (occurrence: FR)
  Receive Date: 20130611
  Receipt Date: 20130730
  Transmission Date: 20140515
  Serious: Yes (Death, Hospitalization, Other)
  Sender: FDA-Public Use
  Company Number: FR-JNJFOC-20130522670

PATIENT
  Sex: Male

DRUGS (4)
  1. ZYTIGA [Suspect]
     Indication: PROSTATE CANCER
     Dosage: 4 TABLETS OF 250 MG AT ONCE
     Route: 048
     Dates: start: 20130419, end: 20130531
  2. PREDNISONE [Concomitant]
     Indication: PROSTATE CANCER
     Route: 048
     Dates: start: 20130419
  3. ZOMETA [Concomitant]
     Route: 042
  4. SKENAN [Concomitant]
     Route: 048

REACTIONS (5)
  - Multi-organ failure [Fatal]
  - Metastases to liver [Unknown]
  - Pericardial effusion [Recovering/Resolving]
  - Renal failure [Unknown]
  - Prostatic specific antigen increased [Unknown]
